FAERS Safety Report 18911767 (Version 1)
Quarter: 2021Q1

REPORT INFORMATION
  Report Type: Spontaneous
  Country: US (occurrence: US)
  Receive Date: 20210218
  Receipt Date: 20210218
  Transmission Date: 20210420
  Serious: No
  Sender: FDA-Public Use
  Company Number: US-TEVA-2021-US-1880178

PATIENT

DRUGS (1)
  1. ATENOLOL TEVA [Suspect]
     Active Substance: ATENOLOL
     Route: 065
     Dates: start: 202006

REACTIONS (3)
  - Drug ineffective [Unknown]
  - Heart rate abnormal [Unknown]
  - Blood pressure abnormal [Unknown]

NARRATIVE: CASE EVENT DATE: 202101
